FAERS Safety Report 9503939 (Version 1)
Quarter: 2013Q3

REPORT INFORMATION
  Report Type: Spontaneous
  Country: US (occurrence: US)
  Receive Date: 20130906
  Receipt Date: 20130906
  Transmission Date: 20140515
  Serious: Yes (Hospitalization, Other)
  Sender: FDA-Public Use
  Company Number: US-UCBSA-096423

PATIENT
  Sex: Female

DRUGS (4)
  1. CIMZIA [Suspect]
     Indication: CROHN^S DISEASE
     Dates: start: 2011
  2. CIMZIA [Suspect]
     Indication: CROHN^S DISEASE
     Dosage: ONE SHOT EVERY ONE WEEK
  3. HUMIRA [Concomitant]
     Indication: CROHN^S DISEASE
  4. KEFLEX [Concomitant]
     Indication: SINUSITIS
     Dates: start: 201204

REACTIONS (6)
  - Abortion spontaneous [Unknown]
  - Glaucoma [Unknown]
  - Crohn^s disease [Unknown]
  - Sinusitis [Unknown]
  - Inappropriate schedule of drug administration [Unknown]
  - Pregnancy [Recovered/Resolved]
